FAERS Safety Report 20872576 (Version 4)
Quarter: 2022Q3

REPORT INFORMATION
  Report Type: Spontaneous
  Country: US (occurrence: US)
  Receive Date: 20220525
  Receipt Date: 20220829
  Transmission Date: 20221027
  Serious: No
  Sender: FDA-Public Use
  Company Number: US-PFIZER INC-202200735126

PATIENT
  Age: 72 Year
  Sex: Male
  Weight: 81.65 kg

DRUGS (7)
  1. PAXLOVID [Suspect]
     Active Substance: NIRMATRELVIR\RITONAVIR
     Indication: COVID-19 treatment
     Dosage: UNK, 2X/DAY
     Dates: start: 202205, end: 202205
  2. LISINOPRIL [Concomitant]
     Active Substance: LISINOPRIL
     Indication: Neoplasm malignant
     Dosage: 40 MG, DAILY
  3. METFORMIN [Concomitant]
     Active Substance: METFORMIN HYDROCHLORIDE
     Indication: Diabetes mellitus
     Dosage: 1000 MG, 1X/DAY
  4. HYDROCHLOROTHIAZIDE [Concomitant]
     Active Substance: HYDROCHLOROTHIAZIDE
     Indication: Glucose tolerance impaired
     Dosage: 25 MG, 1X/DAY
  5. HYDROCHLOROTHIAZIDE [Concomitant]
     Active Substance: HYDROCHLOROTHIAZIDE
     Indication: Blood cholesterol
  6. HYDROCHLOROTHIAZIDE [Concomitant]
     Active Substance: HYDROCHLOROTHIAZIDE
     Indication: Diabetes mellitus
  7. ATORVASTATIN [Concomitant]
     Active Substance: ATORVASTATIN
     Indication: Blood cholesterol
     Dosage: 80 MG, 1X/DAY

REACTIONS (3)
  - COVID-19 [Unknown]
  - Disease recurrence [Unknown]
  - Headache [Unknown]

NARRATIVE: CASE EVENT DATE: 20220517
